FAERS Safety Report 8317856 (Version 7)
Quarter: 2012Q4

REPORT INFORMATION
  Report Type: 
  Country: US (occurrence: US)
  Receive Date: 20120102
  Receipt Date: 20121003
  Transmission Date: 20130627
  Serious: Yes (Other)
  Sender: FDA-Public Use
  Company Number: PHEH2011US012769

PATIENT
  Age: 66 Year
  Sex: Female

DRUGS (5)
  1. GILENYA [Suspect]
     Indication: MULTIPLE SCLEROSIS
     Dosage: 0.5 mg, Daily
     Route: 048
     Dates: start: 20111208
  2. ZOLOFT [Concomitant]
     Indication: DEPRESSION
     Dosage: 200 mg, QD
     Route: 048
     Dates: start: 20110806
  3. SAPHRIS [Concomitant]
     Indication: BIPOLAR DISORDER
     Dosage: 5 mg, QD
     Route: 048
     Dates: start: 20111102
  4. JANUVIA [Concomitant]
     Indication: DIABETES MELLITUS
     Dosage: 100 mg, QD
     Route: 048
     Dates: start: 201106
  5. NUVIGIL [Concomitant]
     Dosage: UNK UKN, UNK

REACTIONS (11)
  - Fall [Recovered/Resolved]
  - Abdominal pain [Recovering/Resolving]
  - Fatigue [Recovering/Resolving]
  - Urinary tract infection [Recovering/Resolving]
  - Visual impairment [Unknown]
  - Skin injury [Recovered/Resolved]
  - Pain in jaw [Not Recovered/Not Resolved]
  - Chest discomfort [Unknown]
  - Depression [Unknown]
  - Decreased interest [Unknown]
  - Apathy [Unknown]
